FAERS Safety Report 7094164-1 (Version None)
Quarter: 2010Q4

REPORT INFORMATION
  Report Type: 
  Country: None (occurrence: None)
  Receive Date: 20101110
  Receipt Date: 20101105
  Transmission Date: 20110411
  Serious: Yes (Hospitalization)
  Sender: FDA-Public Use
  Company Number: US-CEPHALON-2010005799

PATIENT
  Sex: Female
  Weight: 64 kg

DRUGS (2)
  1. NUVIGIL [Suspect]
     Indication: DEPRESSION
     Route: 048
     Dates: start: 20101013
  2. PROZAC [Concomitant]
     Indication: DEPRESSION

REACTIONS (2)
  - INTENTIONAL OVERDOSE [None]
  - SUICIDE ATTEMPT [None]
